FAERS Safety Report 8956403 (Version 1)
Quarter: 2012Q4

REPORT INFORMATION
  Report Type: 
  Country: DE (occurrence: DE)
  Receive Date: 20121210
  Receipt Date: 20121210
  Transmission Date: 20130627
  Serious: Yes (Hospitalization)
  Sender: FDA-Public Use
  Company Number: DE-JNJFOC-2007322658

PATIENT
  Sex: Female

DRUGS (1)
  1. IBUPROFEN [Suspect]
     Indication: HEADACHE
     Dosage: Daily Dose Text: UNSPECIFIED
     Route: 048

REACTIONS (2)
  - Premature labour [Unknown]
  - Exposure during pregnancy [Unknown]
